FAERS Safety Report 17080072 (Version 1)
Quarter: 2019Q4

REPORT INFORMATION
  Report Type: Spontaneous
  Country: US (occurrence: US)
  Receive Date: 20191127
  Receipt Date: 20191127
  Transmission Date: 20200122
  Serious: No
  Sender: FDA-Public Use
  Company Number: US-GLAXOSMITHKLINE-US2019209831

PATIENT
  Sex: Female

DRUGS (2)
  1. WHITE KIDNEY BEANS [Suspect]
     Active Substance: KIDNEY BEAN
     Indication: PRODUCT USED FOR UNKNOWN INDICATION
     Dosage: UNK
  2. ALLI [Suspect]
     Active Substance: ORLISTAT
     Indication: PRODUCT USED FOR UNKNOWN INDICATION
     Dosage: UNK

REACTIONS (1)
  - Product use issue [Unknown]
